FAERS Safety Report 20485737 (Version 4)
Quarter: 2022Q2

REPORT INFORMATION
  Report Type: Other
  Country: FR (occurrence: FR)
  Receive Date: 20220217
  Receipt Date: 20220406
  Transmission Date: 20220721
  Serious: Yes (Death, Other)
  Sender: FDA-Public Use
  Company Number: None

PATIENT
  Age: 92 Year
  Sex: Male

DRUGS (3)
  1. XTANDI [Suspect]
     Active Substance: ENZALUTAMIDE
     Indication: Prostate cancer
     Route: 048
     Dates: start: 20211014, end: 20220202
  2. LEUPROLIDE ACETATE [Suspect]
     Active Substance: LEUPROLIDE ACETATE
     Indication: Prostate cancer
     Dosage: 1 DF (INJECTION) EVERY 3 MONTHS FOR 6 TO 12 MONTHS
     Route: 065
  3. ELIQUIS [Suspect]
     Active Substance: APIXABAN
     Indication: Atrial fibrillation
     Route: 048

REACTIONS (2)
  - Ischaemic stroke [Fatal]
  - Drug ineffective [Unknown]

NARRATIVE: CASE EVENT DATE: 20220202
